FAERS Safety Report 17461258 (Version 2)
Quarter: 2020Q1

REPORT INFORMATION
  Report Type: Report from Study
  Country: DE (occurrence: DE)
  Receive Date: 20200226
  Receipt Date: 20200323
  Transmission Date: 20200409
  Serious: Yes (Death, Hospitalization)
  Sender: FDA-Public Use
  Company Number: DE-ROCHE-2553334

PATIENT
  Age: 32 Year
  Sex: Male

DRUGS (5)
  1. TORASEMID [Concomitant]
     Active Substance: TORSEMIDE
     Indication: ASCITES
     Route: 048
     Dates: start: 20190515
  2. EPLERENONE. [Concomitant]
     Active Substance: EPLERENONE
     Indication: ASCITES
     Route: 048
     Dates: start: 20190515
  3. VEMURAFENIB. [Suspect]
     Active Substance: VEMURAFENIB
     Indication: MALIGNANT MELANOMA
     Route: 048
     Dates: start: 20190624, end: 20200214
  4. COBIMETINIB. [Suspect]
     Active Substance: COBIMETINIB
     Indication: MALIGNANT MELANOMA
     Route: 048
     Dates: start: 20190625, end: 20200214
  5. OMEPRAZOLE. [Concomitant]
     Active Substance: OMEPRAZOLE
     Indication: GASTRITIS
     Route: 048
     Dates: start: 20190515

REACTIONS (5)
  - Multiple organ dysfunction syndrome [Fatal]
  - Weight decreased [Unknown]
  - Decreased appetite [Unknown]
  - Ascites [Fatal]
  - Malaise [Unknown]

NARRATIVE: CASE EVENT DATE: 20200214
